FAERS Safety Report 9006497 (Version 1)
Quarter: 2013Q1

REPORT INFORMATION
  Report Type: Spontaneous
  Country: US (occurrence: None)
  Receive Date: 20130109
  Receipt Date: 20130109
  Transmission Date: 20140127
  Serious: Yes (Hospitalization)
  Sender: FDA-Public Use
  Company Number: DL2013-0070

PATIENT
  Age: 26 Year
  Sex: Female

DRUGS (3)
  1. MIFEPRISTONE [Suspect]
     Indication: ABORTION INDUCED
     Route: 048
     Dates: start: 20121001
  2. MISOPROSTOL [Suspect]
     Route: 002
  3. DOXYCYCLINE [Concomitant]

REACTIONS (4)
  - Abortion incomplete [None]
  - Sepsis [None]
  - Vomiting [None]
  - Pyrexia [None]
